FAERS Safety Report 13769274 (Version 1)
Quarter: 2017Q3

REPORT INFORMATION
  Report Type: Report from Study
  Country: US (occurrence: US)
  Receive Date: 20170719
  Receipt Date: 20170719
  Transmission Date: 20171127
  Serious: Yes (Other)
  Sender: FDA-Public Use
  Company Number: US-ACTELION-A-NJ2015-125081

PATIENT
  Age: 82 Year
  Sex: Female
  Weight: 58.5 kg

DRUGS (2)
  1. TRACLEER [Suspect]
     Active Substance: BOSENTAN
     Indication: PULMONARY ARTERIAL HYPERTENSION
     Dosage: 125 MG, BID
     Route: 048
     Dates: start: 20111212
  2. TRACLEER [Suspect]
     Active Substance: BOSENTAN
     Dosage: UNK
     Route: 048

REACTIONS (16)
  - Nasopharyngitis [Unknown]
  - Fatigue [Unknown]
  - Fall [Unknown]
  - Peripheral swelling [Unknown]
  - Unevaluable event [Unknown]
  - Contusion [Unknown]
  - Asthenia [Unknown]
  - Balance disorder [Unknown]
  - Dizziness [Unknown]
  - Syncope [Unknown]
  - Dyspnoea exertional [Unknown]
  - Limb injury [Unknown]
  - Echocardiogram abnormal [Unknown]
  - Internal haemorrhage [Unknown]
  - Concussion [Unknown]
  - Depressed mood [Unknown]

NARRATIVE: CASE EVENT DATE: 201512
